FAERS Safety Report 20058567 (Version 5)
Quarter: 2022Q3

REPORT INFORMATION
  Report Type: Report from Study
  Country: SE (occurrence: SE)
  Receive Date: 20211111
  Receipt Date: 20220913
  Transmission Date: 20221027
  Serious: Yes (Other)
  Sender: FDA-Public Use
  Company Number: SE-JNJFOC-20211005225

PATIENT
  Age: 28 Year
  Sex: Male
  Weight: 102 kg

DRUGS (9)
  1. ALPRAZOLAM [Suspect]
     Active Substance: ALPRAZOLAM
     Dosage: 2 MG
     Route: 048
  2. SPRAVATO [Suspect]
     Active Substance: ESKETAMINE
     Indication: Depression
     Dosage: 56 MG [TOTAL 3 DOSES (16SEP2021; 21SEP2021; 23SEP2021)]
     Dates: start: 20210916, end: 20210923
  3. SPRAVATO [Suspect]
     Active Substance: ESKETAMINE
     Dosage: 56 MG
     Route: 045
     Dates: start: 20210916, end: 20210916
  4. SPRAVATO [Suspect]
     Active Substance: ESKETAMINE
     Dosage: 84 MG (8 DOSES TAKEN)
     Dates: start: 20210928, end: 20211104
  5. SPRAVATO [Suspect]
     Active Substance: ESKETAMINE
     Dosage: 84 MG
     Route: 045
     Dates: start: 20210928, end: 20211104
  6. SPRAVATO [Suspect]
     Active Substance: ESKETAMINE
     Dosage: 56 MG
     Route: 045
     Dates: start: 20210930, end: 20210930
  7. SPRAVATO [Suspect]
     Active Substance: ESKETAMINE
     Dosage: 56 MG
     Route: 045
     Dates: start: 20211007, end: 20211007
  8. SPRAVATO [Suspect]
     Active Substance: ESKETAMINE
     Dosage: 56 MG
     Route: 045
     Dates: start: 20211012, end: 20211012
  9. SPRAVATO [Suspect]
     Active Substance: ESKETAMINE
     Dosage: 84 MG
     Route: 045
     Dates: start: 20211021, end: 20211021

REACTIONS (11)
  - Bradycardia [Recovered/Resolved]
  - Drug ineffective [Recovered/Resolved]
  - Nausea [Recovered/Resolved]
  - Diarrhoea [Recovered/Resolved]
  - Flatulence [Recovering/Resolving]
  - Fatigue [Recovered/Resolved]
  - Blood pressure increased [Recovering/Resolving]
  - Sedation [Recovering/Resolving]
  - Feeling abnormal [Recovered/Resolved]
  - Euphoric mood [Recovered/Resolved]
  - Euphoric mood [Recovered/Resolved]

NARRATIVE: CASE EVENT DATE: 20210916
